FAERS Safety Report 8480532 (Version 5)
Quarter: 2020Q2

REPORT INFORMATION
  Report Type: Spontaneous
  Country: DE (occurrence: DE)
  Receive Date: 20120328
  Receipt Date: 20200522
  Transmission Date: 20200714
  Serious: Yes (Congenital Anomaly, Other)
  Sender: FDA-Public Use
  Company Number: DE-MYLANLABS-2012S1005609

PATIENT
  Age: 9 Month
  Sex: Male
  Weight: 3.6 kg

DRUGS (5)
  1. FOLIC ACID. [Concomitant]
     Active Substance: FOLIC ACID
     Indication: PROPHYLAXIS OF NEURAL TUBE DEFECT
     Dosage: UNK, 5 [MG/D ]/ ALSO PRECONCEPTIONAL
     Route: 064
     Dates: start: 200911
  2. VIMPAT [Suspect]
     Active Substance: LACOSAMIDE
     Indication: EPILEPSY
     Dosage: 200 MG,UNK
     Route: 064
     Dates: start: 20091111, end: 20100811
  3. LAMOTRIGINE. [Suspect]
     Active Substance: LAMOTRIGINE
     Indication: EPILEPSY
     Dosage: 700 MG,UNK
     Route: 064
     Dates: start: 20091111, end: 20100811
  4. LAMOTRIGINE. [Suspect]
     Active Substance: LAMOTRIGINE
     Dosage: 225-225-250MG
     Route: 064
     Dates: start: 20091111, end: 20100811
  5. VIMPAT [Suspect]
     Active Substance: LACOSAMIDE
     Dosage: 200 MILLIGRAM, QD (100 MG, 2X/DAY (BID))
     Route: 064
     Dates: start: 200911, end: 20100811

REACTIONS (5)
  - Atrial septal defect [Unknown]
  - Coarctation of the aorta [Unknown]
  - Hyperbilirubinaemia [Unknown]
  - Bradycardia neonatal [Recovered/Resolved]
  - Foetal exposure during pregnancy [Recovered/Resolved]

NARRATIVE: CASE EVENT DATE: 200911
